FAERS Safety Report 20278094 (Version 3)
Quarter: 2022Q1

REPORT INFORMATION
  Report Type: Spontaneous
  Country: US (occurrence: US)
  Receive Date: 20220103
  Receipt Date: 20220208
  Transmission Date: 20220424
  Serious: Yes (Hospitalization, Other)
  Sender: FDA-Public Use
  Company Number: US-CELGENE-USA-20211208644

PATIENT
  Sex: Female

DRUGS (2)
  1. REVLIMID [Suspect]
     Active Substance: LENALIDOMIDE
     Indication: Lymphoma
     Dosage: 25 MILLIGRAM
     Route: 048
     Dates: start: 202112
  2. REVLIMID [Suspect]
     Active Substance: LENALIDOMIDE
     Dosage: 10 MILLIGRAM
     Route: 048
     Dates: start: 202201

REACTIONS (6)
  - Transfusion reaction [Unknown]
  - Lymphoma [Unknown]
  - Anaemia [Unknown]
  - Full blood count decreased [Unknown]
  - Platelet count decreased [Unknown]
  - Anaemia [Unknown]

NARRATIVE: CASE EVENT DATE: 20210101
